FAERS Safety Report 8290307-2 (Version None)
Quarter: 2012Q2

REPORT INFORMATION
  Report Type: 
  Country: None (occurrence: None)
  Receive Date: 20120412
  Receipt Date: 20120412
  Transmission Date: 20120825
  Serious: No
  Sender: FDA-Public Use
  Company Number: None

PATIENT
  Sex: Male

DRUGS (2)
  1. RIBAVIRIN [Suspect]
     Dosage: 600 MG BID PO
     Route: 048
     Dates: start: 20120120, end: 20120406
  2. PEG-INTRON [Concomitant]
     Route: 048

REACTIONS (2)
  - BLOOD URINE PRESENT [None]
  - RASH [None]
